FAERS Safety Report 22529528 (Version 1)
Quarter: 2023Q2

REPORT INFORMATION
  Report Type: Spontaneous
  Country: FR (occurrence: FR)
  Receive Date: 20230607
  Receipt Date: 20230607
  Transmission Date: 20230722
  Serious: Yes (Other)
  Sender: FDA-Public Use
  Company Number: FR-GSKCCFEMEA-Case-01739438_AE-71287

PATIENT

DRUGS (1)
  1. LAMICTAL [Suspect]
     Active Substance: LAMOTRIGINE
     Indication: Product used for unknown indication
     Dosage: 200 MG, QD(IN THE EVENING)

REACTIONS (2)
  - Ankylosing spondylitis [Unknown]
  - Renal failure [Unknown]

NARRATIVE: CASE EVENT DATE: 20210101
